FAERS Safety Report 9281074 (Version 1)
Quarter: 2013Q2

REPORT INFORMATION
  Report Type: Spontaneous
  Country: FR (occurrence: FR)
  Receive Date: 20130509
  Receipt Date: 20130509
  Transmission Date: 20140414
  Serious: Yes (Hospitalization)
  Sender: FDA-Public Use
  Company Number: FR-EISAI INC-E3810-06409-SPO-FR

PATIENT
  Age: 53 Year
  Sex: Female

DRUGS (1)
  1. PARIET (RABEPRAZOLE) [Suspect]
     Indication: BURN OESOPHAGEAL
     Dosage: BETWEEN 20MG AND 40MG
     Route: 048
     Dates: start: 200608, end: 20130409

REACTIONS (1)
  - Gastric polyps [Unknown]
